FAERS Safety Report 6397415-1 (Version None)
Quarter: 2009Q4

REPORT INFORMATION
  Report Type: 
  Country: None (occurrence: None)
  Receive Date: 20091012
  Receipt Date: 20091006
  Transmission Date: 20100525
  Serious: Yes (Death, Other)
  Sender: FDA-Public Use
  Company Number: AU-BRISTOL-MYERS SQUIBB COMPANY-14807127

PATIENT
  Age: 69 Year
  Sex: Male

DRUGS (9)
  1. ETOPOSIDE [Suspect]
  2. CYCLOPHOSPHAMIDE [Suspect]
  3. VINCRISTINE SULFATE [Suspect]
  4. MITOXANTRONE [Suspect]
  5. MABTHERA [Suspect]
  6. CANDESARTAN CILEXETIL [Concomitant]
  7. OMEPRAZOLE [Concomitant]
  8. PREDNISOLONE [Concomitant]
  9. WARFARIN SODIUM [Concomitant]

REACTIONS (10)
  - APHASIA [None]
  - COMA SCALE ABNORMAL [None]
  - CONFUSIONAL STATE [None]
  - DEPRESSED LEVEL OF CONSCIOUSNESS [None]
  - DISORIENTATION [None]
  - GERSTMANN'S SYNDROME [None]
  - HYPERAMMONAEMIC ENCEPHALOPATHY [None]
  - LETHARGY [None]
  - MOBILITY DECREASED [None]
  - PARTIAL SEIZURES [None]
